FAERS Safety Report 14532286 (Version 1)
Quarter: 2018Q1

REPORT INFORMATION
  Report Type: Spontaneous
  Country: BA (occurrence: BA)
  Receive Date: 20180214
  Receipt Date: 20180214
  Transmission Date: 20180509
  Serious: Yes (Hospitalization)
  Sender: FDA-Public Use
  Company Number: PHHY2018BA021348

PATIENT
  Age: 6 Year
  Sex: Male

DRUGS (4)
  1. OSPEN [Suspect]
     Active Substance: PENICILLIN V
     Indication: OROPHARYNGEAL PAIN
     Dosage: UNK
     Route: 065
  2. IBUPROFEN. [Concomitant]
     Active Substance: IBUPROFEN
     Indication: PRODUCT USED FOR UNKNOWN INDICATION
     Dosage: UNK
     Route: 065
  3. OSPEN [Suspect]
     Active Substance: PENICILLIN V
     Indication: PYREXIA
  4. PARACETAMOL [Concomitant]
     Active Substance: ACETAMINOPHEN
     Indication: PRODUCT USED FOR UNKNOWN INDICATION
     Dosage: UNK
     Route: 065

REACTIONS (3)
  - Asthenia [Recovered/Resolved]
  - Rash [Recovering/Resolving]
  - Abdominal pain upper [Recovered/Resolved]
